FAERS Safety Report 19370067 (Version 1)
Quarter: 2021Q2

REPORT INFORMATION
  Report Type: Report from Study
  Country: None (occurrence: US)
  Receive Date: 20210604
  Receipt Date: 20210604
  Transmission Date: 20210717
  Serious: Yes (Other)
  Sender: FDA-Public Use
  Company Number: US-ABBVIE-21K-163-3780820-00

PATIENT
  Age: 49 Year
  Sex: Male

DRUGS (3)
  1. HUMIRA [Suspect]
     Active Substance: ADALIMUMAB
     Route: 058
  2. HUMIRA [Suspect]
     Active Substance: ADALIMUMAB
     Route: 058
     Dates: start: 2021, end: 2021
  3. HUMIRA [Suspect]
     Active Substance: ADALIMUMAB
     Indication: RHEUMATOID ARTHRITIS
     Route: 058

REACTIONS (8)
  - Appendicitis [Unknown]
  - Injection site haemorrhage [Unknown]
  - Tooth infection [Recovered/Resolved]
  - Tooth infection [Unknown]
  - Tooth abscess [Recovered/Resolved]
  - Wrong technique in product usage process [Recovered/Resolved]
  - Gastrointestinal scarring [Unknown]
  - Foot fracture [Recovered/Resolved]

NARRATIVE: CASE EVENT DATE: 202012
